FAERS Safety Report 11265477 (Version 1)
Quarter: 2015Q3

REPORT INFORMATION
  Report Type: Spontaneous
  Country: US (occurrence: None)
  Receive Date: 20150710
  Receipt Date: 20150710
  Transmission Date: 20151125
  Serious: Yes (Hospitalization)
  Sender: FDA-Public Use
  Company Number: None

PATIENT
  Age: 64 Year
  Sex: Female
  Weight: 103.42 kg

DRUGS (12)
  1. PHENTERMINE. [Concomitant]
     Active Substance: PHENTERMINE
  2. METHOTREXATE [Concomitant]
     Active Substance: METHOTREXATE
  3. ATORVASTATIN [Concomitant]
     Active Substance: ATORVASTATIN
  4. FOLIC ACID. [Concomitant]
     Active Substance: FOLIC ACID
  5. LORAZEPAM. [Concomitant]
     Active Substance: LORAZEPAM
  6. VITAMIN D [Concomitant]
     Active Substance: CHOLECALCIFEROL
  7. NAPROXEN OVER-THE-COUNTER [Suspect]
     Active Substance: NAPROXEN
     Indication: PAIN IN EXTREMITY
  8. ETANERCEPT [Concomitant]
     Active Substance: ETANERCEPT
  9. TELMISARTAN. [Concomitant]
     Active Substance: TELMISARTAN
  10. VIMOVO [Suspect]
     Active Substance: ESOMEPRAZOLE MAGNESIUM\NAPROXEN
     Indication: RHEUMATOID ARTHRITIS
     Route: 048
  11. CALCIUM SUPPLEMENT [Concomitant]
     Active Substance: CALCIUM
  12. DIPHENHYDRAMINE-ACETAMINOPHEN [Concomitant]

REACTIONS (4)
  - Haematochezia [None]
  - Rectal haemorrhage [None]
  - Hyperhidrosis [None]
  - Abdominal pain [None]

NARRATIVE: CASE EVENT DATE: 20150702
